FAERS Safety Report 17227916 (Version 1)
Quarter: 2020Q1

REPORT INFORMATION
  Report Type: Spontaneous
  Country: IN (occurrence: IN)
  Receive Date: 20200102
  Receipt Date: 20200102
  Transmission Date: 20200409
  Serious: Yes (Hospitalization)
  Sender: FDA-Public Use
  Company Number: None

PATIENT
  Age: 52 Year
  Sex: Female
  Weight: 52.84 kg

DRUGS (2)
  1. FLUCONAZOLE. [Suspect]
     Active Substance: FLUCONAZOLE
     Indication: VULVOVAGINAL CANDIDIASIS
     Dosage: ?          OTHER FREQUENCY:Q72H, FOR 3 DAYS;?
     Route: 048
     Dates: start: 20181020
  2. REMERON [Concomitant]
     Active Substance: MIRTAZAPINE
     Dates: start: 20190120

REACTIONS (5)
  - Traumatic amputation [None]
  - Leg amputation [None]
  - Suicidal ideation [None]
  - Road traffic accident [None]
  - Facial bones fracture [None]

NARRATIVE: CASE EVENT DATE: 20191103
